FAERS Safety Report 24111282 (Version 1)
Quarter: 2024Q3

REPORT INFORMATION
  Report Type: Spontaneous
  Country: US (occurrence: US)
  Receive Date: 20240718
  Receipt Date: 20240718
  Transmission Date: 20241017
  Serious: No
  Sender: SANOFI AVENTIS
  Company Number: US-SANOFI-02130991

PATIENT
  Age: 80 Year
  Sex: Female

DRUGS (1)
  1. ADMELOG [Suspect]
     Active Substance: INSULIN LISPRO
     Dosage: 20 U
     Route: 065

REACTIONS (2)
  - Illness [Unknown]
  - Device breakage [Unknown]

NARRATIVE: CASE EVENT DATE: 20240701
